FAERS Safety Report 6080269-0 (Version None)
Quarter: 2009Q1

REPORT INFORMATION
  Report Type: 
  Country: None (occurrence: None)
  Receive Date: 20090217
  Receipt Date: 20090203
  Transmission Date: 20090719
  Serious: Yes (Death, Other)
  Sender: FDA-Public Use
  Company Number: ES-JNJFOC-20090201640

PATIENT
  Sex: Female

DRUGS (10)
  1. REMICADE [Suspect]
     Indication: RHEUMATOID ARTHRITIS
     Route: 042
  2. CORTICOID [Concomitant]
  3. OPIOIDS [Concomitant]
  4. IECA [Concomitant]
  5. FUROSEMIDE [Concomitant]
  6. GABAPENTIN [Concomitant]
  7. RABEPRAZOLE SODIUM [Concomitant]
  8. AMITRIPTYLINE HCL [Concomitant]
  9. MAGNESIUM CREAM [Concomitant]
  10. HODERNAL [Concomitant]

REACTIONS (3)
  - BILIARY NEOPLASM [None]
  - BLADDER NEOPLASM [None]
  - NEOPLASM PROGRESSION [None]
